FAERS Safety Report 6728412-1 (Version None)
Quarter: 2010Q2

REPORT INFORMATION
  Report Type: 
  Country: None (occurrence: None)
  Receive Date: 20100517
  Receipt Date: 20100504
  Transmission Date: 20101027
  Serious: Yes (Other)
  Sender: FDA-Public Use
  Company Number: JP-PFIZER INC-2009316286

PATIENT
  Age: 76 Year
  Sex: Male

DRUGS (1)
  1. SEIBULE [Suspect]
     Dosage: UNK
     Route: 048
     Dates: start: 20090216, end: 20090515

REACTIONS (1)
  - LIVER DISORDER [None]
